FAERS Safety Report 6587284-9 (Version None)
Quarter: 2010Q1

REPORT INFORMATION
  Report Type: 
  Country: None (occurrence: None)
  Receive Date: 20100217
  Receipt Date: 20090512
  Transmission Date: 20100710
  Serious: No
  Sender: FDA-Public Use
  Company Number: US-ALLERGAN-0906604US

PATIENT
  Age: 50 Year
  Sex: Female

DRUGS (1)
  1. BOTOX COSMETIC [Suspect]
     Indication: SKIN WRINKLING
     Dosage: 50 UNITS, SINGLE
     Route: 030
     Dates: start: 20090502, end: 20090502

REACTIONS (6)
  - DECREASED APPETITE [None]
  - EYELID PTOSIS [None]
  - INSOMNIA [None]
  - SENSATION OF HEAVINESS [None]
  - SWELLING FACE [None]
  - VISION BLURRED [None]
